FAERS Safety Report 7773908-7 (Version None)
Quarter: 2011Q3

REPORT INFORMATION
  Report Type: 
  Country: None (occurrence: None)
  Receive Date: 20110923
  Receipt Date: 20110919
  Transmission Date: 20111222
  Serious: Yes (Other)
  Sender: FDA-Public Use
  Company Number: US-PFIZER INC-2011222492

PATIENT
  Sex: Female
  Weight: 47.6 kg

DRUGS (4)
  1. DILANTIN [Suspect]
     Indication: GRAND MAL CONVULSION
     Dosage: 100 MG, 1X/DAY
     Route: 048
     Dates: start: 19570101
  2. LEVOTHYROXINE [Concomitant]
     Indication: HYPOTHYROIDISM
     Dosage: UNK
  3. MEBARAL [Concomitant]
     Indication: GRAND MAL CONVULSION
     Dosage: UNK
     Dates: start: 19780101
  4. PHENOBARBITAL [Concomitant]
     Indication: GRAND MAL CONVULSION
     Dosage: UNK
     Dates: start: 19570101, end: 19710101

REACTIONS (1)
  - BONE DISORDER [None]
